FAERS Safety Report 20795552 (Version 2)
Quarter: 2022Q4

REPORT INFORMATION
  Report Type: Report from Study
  Country: DE (occurrence: DE)
  Receive Date: 20220506
  Receipt Date: 20221130
  Transmission Date: 20230113
  Serious: Yes (Hospitalization)
  Sender: FDA-Public Use
  Company Number: DE-MYLANLABS-2022M1033111

PATIENT
  Age: 31 Year
  Sex: Female
  Weight: 130 kg

DRUGS (2)
  1. HULIO [Suspect]
     Active Substance: ADALIMUMAB-FKJP
     Indication: Psoriasis
     Dosage: 40 MILLIGRAM, Q2W, (2 WEEKS)
     Route: 058
     Dates: start: 20190715
  2. HULIO [Suspect]
     Active Substance: ADALIMUMAB-FKJP
     Indication: Prostatic specific antigen

REACTIONS (3)
  - Metabolic surgery [Recovered/Resolved]
  - Gastrostomy [Recovered/Resolved]
  - COVID-19 [Recovered/Resolved]

NARRATIVE: CASE EVENT DATE: 20211103
